FAERS Safety Report 14820182 (Version 1)
Quarter: 2018Q2

REPORT INFORMATION
  Report Type: Spontaneous
  Country: DE (occurrence: DE)
  Receive Date: 20180427
  Receipt Date: 20180427
  Transmission Date: 20180711
  Serious: Yes (Hospitalization, Other)
  Sender: FDA-Public Use
  Company Number: PHHY2017DE202550

PATIENT
  Sex: Male
  Weight: 55 kg

DRUGS (20)
  1. TRAMAL [Suspect]
     Active Substance: TRAMADOL
     Dosage: 30 DF, TID (PRN)
     Route: 065
     Dates: start: 20170810
  2. MORPHINE [Suspect]
     Active Substance: MORPHINE
     Dosage: 4 ML, IN ADDITION, IF REQUIRED
     Route: 042
     Dates: start: 20170810
  3. ZOLPIDEM [Suspect]
     Active Substance: ZOLPIDEM\ZOLPIDEM TARTRATE
     Indication: PRODUCT USED FOR UNKNOWN INDICATION
     Dosage: 5 MG, UNK
     Route: 065
     Dates: start: 20170729
  4. TRAMAL LONG [Suspect]
     Active Substance: TRAMADOL
     Indication: PRODUCT USED FOR UNKNOWN INDICATION
     Dosage: 200 MG, QD
     Route: 065
     Dates: start: 20170729
  5. MORPHINE [Suspect]
     Active Substance: MORPHINE
     Indication: PRODUCT USED FOR UNKNOWN INDICATION
     Dosage: 6 ML, QH
     Route: 042
     Dates: start: 20170729
  6. NOVAMINSULFON 1A PHARMA [Suspect]
     Active Substance: METAMIZOLE SODIUM
     Indication: PRODUCT USED FOR UNKNOWN INDICATION
     Dosage: 120 GTT, QD
     Route: 065
     Dates: start: 20170729
  7. HUMIRA [Suspect]
     Active Substance: ADALIMUMAB
     Dosage: UNK
     Route: 065
  8. IBUPROFEN. [Concomitant]
     Active Substance: IBUPROFEN
     Indication: PRODUCT USED FOR UNKNOWN INDICATION
     Dosage: UNK UNK, PRN
     Route: 065
  9. TRAMAL [Suspect]
     Active Substance: TRAMADOL
     Indication: PRODUCT USED FOR UNKNOWN INDICATION
     Dosage: 30 DF, TID (PRN)
     Route: 065
     Dates: start: 20170729
  10. NOVAMINSULFON 1A PHARMA [Suspect]
     Active Substance: METAMIZOLE SODIUM
     Dosage: 120 GTT, QD
     Route: 065
     Dates: start: 20170810
  11. PANTOPRAZOL [Suspect]
     Active Substance: PANTOPRAZOLE SODIUM
     Indication: PRODUCT USED FOR UNKNOWN INDICATION
     Dosage: 40 MG, QD
     Route: 065
     Dates: start: 20170729
  12. HUMIRA [Suspect]
     Active Substance: ADALIMUMAB
     Indication: HIDRADENITIS
     Dosage: 40 MG, QW
     Route: 058
     Dates: start: 20160412
  13. HUMIRA [Suspect]
     Active Substance: ADALIMUMAB
     Indication: PSORIASIS
     Dosage: 40 MG, QW
     Route: 058
     Dates: end: 20170722
  14. TRAMAL LONG [Suspect]
     Active Substance: TRAMADOL
     Dosage: 200 MG, QD
     Route: 065
     Dates: start: 20170810
  15. PANTOPRAZOL [Suspect]
     Active Substance: PANTOPRAZOLE SODIUM
     Dosage: 40 MG, QD
     Route: 065
     Dates: start: 20170810
  16. HUMIRA [Suspect]
     Active Substance: ADALIMUMAB
     Dosage: 40 MG, QW
     Route: 058
     Dates: end: 201708
  17. MORPHINE [Suspect]
     Active Substance: MORPHINE
     Dosage: 4 ML, IN ADDITION, IF REQUIRED
     Route: 042
     Dates: start: 20170729
  18. MORPHINE [Suspect]
     Active Substance: MORPHINE
     Dosage: 6 ML, QH
     Route: 042
     Dates: start: 20170810
  19. ZOLPIDEM [Suspect]
     Active Substance: ZOLPIDEM\ZOLPIDEM TARTRATE
     Dosage: 5 MG, UNK
     Route: 065
     Dates: start: 20170810
  20. DEKRISTOL [Concomitant]
     Active Substance: CHOLECALCIFEROL
     Indication: PRODUCT USED FOR UNKNOWN INDICATION
     Dosage: UNK
     Route: 065

REACTIONS (4)
  - Pneumothorax spontaneous [Recovered/Resolved]
  - Pneumothorax spontaneous [Recovered/Resolved]
  - Abscess [Recovering/Resolving]
  - Psoriasis [Not Recovered/Not Resolved]

NARRATIVE: CASE EVENT DATE: 201605
